FAERS Safety Report 14216542 (Version 1)
Quarter: 2017Q4

REPORT INFORMATION
  Report Type: Spontaneous
  Country: US (occurrence: US)
  Receive Date: 20171122
  Receipt Date: 20171122
  Transmission Date: 20180321
  Serious: Yes (Hospitalization)
  Sender: FDA-Public Use
  Company Number: US-SA-2017SA231923

PATIENT
  Age: 47 Year
  Sex: Male
  Weight: 86.18 kg

DRUGS (24)
  1. FABRAZYME [Suspect]
     Active Substance: AGALSIDASE BETA
     Indication: FABRY^S DISEASE
     Route: 041
  2. HEPARIN [Concomitant]
     Active Substance: HEPARIN SODIUM
     Indication: FLUSHING
     Dosage: DOSE: 100 UNITS/ML
     Route: 042
     Dates: start: 20171013
  3. NORMAL SALINE [Concomitant]
     Active Substance: SODIUM CHLORIDE
     Indication: MEDICATION DILUTION
     Route: 042
     Dates: start: 20171013
  4. ARAVA [Concomitant]
     Active Substance: LEFLUNOMIDE
     Route: 048
     Dates: start: 20161031
  5. FABRAZYME [Suspect]
     Active Substance: AGALSIDASE BETA
     Indication: FABRY^S DISEASE
     Route: 041
  6. MELATONIN [Concomitant]
     Active Substance: MELATONIN
     Route: 048
     Dates: start: 20170413
  7. MUPIROCIN. [Concomitant]
     Active Substance: MUPIROCIN
     Dosage: DOSE: 1 APPLICATION
     Route: 061
     Dates: start: 20170626
  8. VITAMIN D3 [Concomitant]
     Active Substance: CHOLECALCIFEROL
     Route: 048
     Dates: start: 20170413
  9. PSYLLIUM HUSK. [Concomitant]
     Active Substance: PSYLLIUM HUSK
     Route: 048
     Dates: start: 20170413
  10. ASPIRIN. [Concomitant]
     Active Substance: ASPIRIN
     Route: 048
     Dates: start: 20170413
  11. GABAPENTIN. [Concomitant]
     Active Substance: GABAPENTIN
     Route: 048
     Dates: start: 20170302
  12. PROGRAF [Concomitant]
     Active Substance: TACROLIMUS\TACROLIMUS ANHYDROUS
     Route: 048
     Dates: start: 20170216
  13. FABRAZYME [Suspect]
     Active Substance: AGALSIDASE BETA
     Indication: LIPIDOSIS
     Route: 041
  14. FLUTICASONE. [Concomitant]
     Active Substance: FLUTICASONE
     Route: 055
     Dates: start: 20171028
  15. VITAMIN B COMPLEX WITH C [Concomitant]
     Active Substance: ASCORBIC ACID\CALCIUM PANTOTHENATE\CYANOCOBALAMIN\NIACINAMIDE\PYRIDOXINE HYDROCHLORIDE\RIBOFLAVIN\THIAMINE MONONITRATE
     Route: 048
     Dates: start: 20170302
  16. EPINEPHRINE. [Concomitant]
     Active Substance: EPINEPHRINE
     Indication: ANAPHYLACTIC REACTION
     Route: 030
     Dates: start: 20171013
  17. TESTOSTERONE. [Concomitant]
     Active Substance: TESTOSTERONE
     Route: 030
     Dates: start: 20170525
  18. FUROSEMIDE. [Concomitant]
     Active Substance: FUROSEMIDE
     Route: 048
     Dates: start: 20170413
  19. FABRAZYME [Suspect]
     Active Substance: AGALSIDASE BETA
     Indication: LIPIDOSIS
     Route: 041
  20. CYANOCOBALAMIN. [Concomitant]
     Active Substance: CYANOCOBALAMIN
     Route: 030
     Dates: start: 20170525
  21. DIPHENHYDRAMINE. [Concomitant]
     Active Substance: DIPHENHYDRAMINE
     Indication: ANAPHYLACTIC REACTION
     Route: 065
     Dates: start: 20171013
  22. LMX 5 [Concomitant]
     Indication: PREMEDICATION
     Route: 061
     Dates: start: 20171013
  23. FENTANYL. [Concomitant]
     Active Substance: FENTANYL
     Dosage: FREQ: EVERY 3 DAYS?DOSE: 1 PATCH
     Route: 061
     Dates: start: 20170829
  24. DHEA [Concomitant]
     Active Substance: PRASTERONE
     Route: 048
     Dates: start: 20170413

REACTIONS (4)
  - Seizure [Unknown]
  - Incoherent [Unknown]
  - Aphasia [Unknown]
  - Transient ischaemic attack [Unknown]

NARRATIVE: CASE EVENT DATE: 20171102
